FAERS Safety Report 4313374-7 (Version None)
Quarter: 2004Q1

REPORT INFORMATION
  Report Type: 
  Country: None (occurrence: None)
  Receive Date: 20040304
  Receipt Date: 20040216
  Transmission Date: 20041129
  Serious: Yes (Other)
  Sender: FDA-Public Use
  Company Number: US_0402100887

PATIENT
  Age: 51 Year
  Sex: Female
  Weight: 61 kg

DRUGS (3)
  1. HUMULIN R [Suspect]
     Dosage: 10 U
     Dates: start: 19840101
  2. HUMULIN N [Suspect]
     Dosage: 30 U
  3. METFORMIN HCL [Concomitant]

REACTIONS (5)
  - CARDIAC DISORDER [None]
  - NEUROPATHY [None]
  - POOR PERIPHERAL CIRCULATION [None]
  - PRE-EXISTING CONDITION IMPROVED [None]
  - UNEXPECTED THERAPEUTIC DRUG EFFECT [None]
